FAERS Safety Report 8273888-4 (Version None)
Quarter: 2012Q2

REPORT INFORMATION
  Report Type: 
  Country: None (occurrence: None)
  Receive Date: 20120409
  Receipt Date: 20120313
  Transmission Date: 20120825
  Serious: Yes (Life-Threatening)
  Sender: FDA-Public Use
  Company Number: AMLO20120005

PATIENT
  Age: 8 Year
  Sex: Male

DRUGS (24)
  1. MIDAZOLAM [Concomitant]
  2. MORPHINE SULFATE [Concomitant]
  3. NICARDIPINE HCL [Suspect]
     Indication: HYPERTENSION
     Dosage: 1 MCG/KG/MIN, INTRAVENOUS
     Route: 042
  4. LIDOCAINE 2.5% AND PRILOCAINE 2.5% CREAME (LIDOCAINE, PRILOCAINE) [Concomitant]
  5. THIAMINE HYDROCHLORIDE [Concomitant]
  6. CYCLOPHOSPHAMIDE [Concomitant]
  7. VINCRISTINE SULFATE [Concomitant]
  8. FLUCONAZOLE [Concomitant]
  9. VECURONIUM BROMIDE [Concomitant]
  10. AMLODIPINE BESYLATE [Suspect]
     Indication: HYPERTENSION
     Dosage: 5 MG,,VIA NG TUBE
  11. METHOTREXATE [Concomitant]
  12. FAMOTIDINE [Concomitant]
  13. ONDANSETRON [Concomitant]
  14. VANCOMYCIN [Concomitant]
  15. DEXAMETHASONE [Concomitant]
  16. BACITRACIN [Concomitant]
  17. LEUCOVORIN CALCIUM [Concomitant]
  18. TRIMETHOPRIM + SULFAMETHOXAZOLE [Concomitant]
  19. CEFEPIME [Concomitant]
  20. CYTARABINE [Concomitant]
  21. FENTANYL [Concomitant]
  22. DOXORUBICIN HCL [Concomitant]
  23. DIPHENHYDRAMINE HYDROCHLORIDE [Concomitant]
  24. HEPARIN [Concomitant]

REACTIONS (3)
  - UPPER AIRWAY OBSTRUCTION [None]
  - ANGIOEDEMA [None]
  - MACROGLOSSIA [None]
